FAERS Safety Report 7608329-0 (Version None)
Quarter: 2011Q3

REPORT INFORMATION
  Report Type: 
  Country: None (occurrence: None)
  Receive Date: 20110714
  Receipt Date: 20110707
  Transmission Date: 20111222
  Serious: Yes (Hospitalization, Other)
  Sender: FDA-Public Use
  Company Number: GB-B.I. PHARMACEUTICALS,INC./RIDGEFIELD-2011-UK-00598UK

PATIENT
  Age: 71 Year
  Sex: Male

DRUGS (3)
  1. MELOXICAM [Suspect]
     Indication: ARTHRALGIA
     Dosage: 15 MG
     Route: 048
     Dates: start: 20110411, end: 20110509
  2. ACETAMINOPHEN [Concomitant]
     Indication: ARTHRALGIA
     Dosage: 4 G
     Route: 048
     Dates: start: 20091201
  3. SIMVASTATIN [Concomitant]
     Indication: HYPERCHOLESTEROLAEMIA
     Dosage: 40 MG
     Route: 048
     Dates: start: 20100101

REACTIONS (3)
  - VOMITING [None]
  - DUODENITIS [None]
  - ABDOMINAL PAIN [None]
